FAERS Safety Report 5134384-6 (Version None)
Quarter: 2006Q4

REPORT INFORMATION
  Report Type: 
  Country: None (occurrence: None)
  Receive Date: 20061025
  Receipt Date: 20061016
  Transmission Date: 20070319
  Serious: Yes (Hospitalization)
  Sender: FDA-Public Use
  Company Number: JP-NOVOPROD-257815

PATIENT
  Age: 75 Year
  Sex: Female
  Weight: 55 kg

DRUGS (8)
  1. NOVORAPID 30 MIX CHU FLEXPEN [Suspect]
     Indication: INSULIN-REQUIRING TYPE II DIABETES MELLITUS
     Dosage: 32-38 UNITS SLIDING SCALE
     Route: 058
     Dates: start: 20050822, end: 20051101
  2. ADALAT [Concomitant]
     Indication: HYPERTENSION
     Dosage: 40 MG, QD
     Route: 048
     Dates: start: 20050822
  3. DIOVAN                             /01319601/ [Concomitant]
     Indication: HYPERTENSION
     Dosage: 80 MG, QD
     Route: 048
     Dates: start: 20050822
  4. WYTENS                             /00658402/ [Concomitant]
     Indication: HYPERTENSION
     Dosage: 2 MG, QD
     Route: 048
     Dates: start: 20050822
  5. FLUITRAN [Concomitant]
     Indication: HYPERTENSION
     Dosage: 1 MG, QD
     Route: 048
     Dates: start: 20050822
  6. KINEDAK [Concomitant]
     Indication: DIABETIC NEPHROPATHY
     Dosage: 150 MG, QD
     Route: 048
     Dates: start: 20050822
  7. JUVELA NICOTINATE [Concomitant]
     Indication: DIABETIC NEPHROPATHY
     Dosage: 300 MG, QD
     Route: 048
     Dates: start: 20050822
  8. CYANOCOBALAMIN [Concomitant]
     Indication: DIABETIC NEPHROPATHY
     Dosage: 1.5 MG, QD
     Route: 048
     Dates: start: 20050822

REACTIONS (4)
  - ALANINE AMINOTRANSFERASE INCREASED [None]
  - ASPARTATE AMINOTRANSFERASE INCREASED [None]
  - HEPATITIS C [None]
  - HYPOGLYCAEMIA [None]
